FAERS Safety Report 10265418 (Version 2)
Quarter: 2014Q3

REPORT INFORMATION
  Report Type: Spontaneous
  Country: US (occurrence: US)
  Receive Date: 20140627
  Receipt Date: 20140716
  Transmission Date: 20150326
  Serious: Yes (Hospitalization, Other)
  Sender: FDA-Public Use
  Company Number: US-BAYER-2014-092653

PATIENT
  Age: 21 Year
  Sex: Male

DRUGS (6)
  1. LEVAQUIN [Suspect]
     Active Substance: LEVOFLOXACIN
     Indication: TESTICULAR PAIN
     Dosage: UNK
  2. HALDOL [Suspect]
     Active Substance: HALOPERIDOL
     Dosage: 5 MG, UNK
     Route: 048
     Dates: start: 20140614
  3. ATIVAN [Suspect]
     Active Substance: LORAZEPAM
     Dosage: 2 MG, UNK
     Dates: start: 20140615
  4. CIPRO [Suspect]
     Active Substance: CIPROFLOXACIN HYDROCHLORIDE
     Indication: TESTICULAR PAIN
     Dosage: 3-4 DOSES
     Dates: start: 20140611, end: 20140612
  5. NAPROSYN [Suspect]
     Active Substance: NAPROXEN
     Indication: TESTICULAR PAIN
     Dosage: UNKNOWN DOSE
     Dates: start: 20140611, end: 20140612
  6. AMBIEN [Suspect]
     Active Substance: ZOLPIDEM TARTRATE
     Dosage: UNK
     Dates: start: 20140616

REACTIONS (22)
  - Hypersensitivity [None]
  - Hallucination [None]
  - Drooling [None]
  - Paranoia [None]
  - Depression [None]
  - Rash [None]
  - Mania [None]
  - Catatonia [None]
  - Ligament sprain [None]
  - Insomnia [None]
  - Anxiety [None]
  - Suspiciousness [None]
  - Bowel movement irregularity [None]
  - Delusion [None]
  - Agitation [None]
  - Suicidal ideation [None]
  - Erythema [None]
  - Dyspnoea [None]
  - Rash erythematous [None]
  - Hallucination, auditory [None]
  - Confusional state [None]
  - Hallucination, visual [None]

NARRATIVE: CASE EVENT DATE: 201406
